FAERS Safety Report 13306954 (Version 1)
Quarter: 2017Q1

REPORT INFORMATION
  Report Type: Spontaneous
  Country: US (occurrence: US)
  Receive Date: 20170308
  Receipt Date: 20170308
  Transmission Date: 20170428
  Serious: No
  Sender: FDA-Public Use
  Company Number: US-AKORN PHARMACEUTICALS-2016AKN00595

PATIENT
  Sex: Male

DRUGS (5)
  1. MYORISAN [Suspect]
     Active Substance: ISOTRETINOIN
     Indication: ACNE
     Dosage: 20 MG, 1X/DAY
     Route: 048
     Dates: start: 20160428
  2. UNSPECIFIED ANTIHISTAMINES [Concomitant]
     Indication: HYPERSENSITIVITY
     Dosage: UNK, AS NEEDED
  3. MYORISAN [Suspect]
     Active Substance: ISOTRETINOIN
     Dosage: 20 MG, 1X/DAY
     Dates: start: 20160804, end: 201608
  4. MULTIVITAMIN (MVI) [Concomitant]
  5. MYORISAN [Suspect]
     Active Substance: ISOTRETINOIN
     Dosage: 20 MG, 2X/DAY
     Dates: start: 20160609, end: 20160803

REACTIONS (1)
  - Arthralgia [Recovering/Resolving]

NARRATIVE: CASE EVENT DATE: 2016
